FAERS Safety Report 8097837-7 (Version None)
Quarter: 2012Q1

REPORT INFORMATION
  Report Type: 
  Country: None (occurrence: None)
  Receive Date: 20120128
  Receipt Date: 20110805
  Transmission Date: 20120608
  Serious: No
  Sender: FDA-Public Use
  Company Number: US-ABBOTT-11P-163-0844428-00

PATIENT
  Sex: Female
  Weight: 88.53 kg

DRUGS (2)
  1. HUMIRA [Suspect]
     Indication: CROHN'S DISEASE
     Dates: start: 20100601, end: 20101001
  2. HUMIRA [Suspect]
     Dates: start: 20110701

REACTIONS (3)
  - DEFORMITY [None]
  - MYCOBACTERIAL INFECTION [None]
  - SCAR [None]
